FAERS Safety Report 20992175 (Version 1)
Quarter: 2022Q2

REPORT INFORMATION
  Report Type: Report from Study
  Country: CA (occurrence: CA)
  Receive Date: 20220622
  Receipt Date: 20220622
  Transmission Date: 20220721
  Serious: Yes (Other)
  Sender: FDA-Public Use
  Company Number: None

PATIENT
  Age: 75 Year
  Sex: Male

DRUGS (2)
  1. OLMESARTAN [Suspect]
     Active Substance: OLMESARTAN
     Indication: Hypertension
  2. LANREOTIDE ACETATE [Suspect]
     Active Substance: LANREOTIDE ACETATE
     Indication: Neuroendocrine tumour
     Dosage: SOLUTION(EXTENDED RELEASE), EVERY 4 WEEKS
     Route: 058

REACTIONS (7)
  - Chest discomfort [Not Recovered/Not Resolved]
  - Dizziness [Not Recovered/Not Resolved]
  - Epistaxis [Not Recovered/Not Resolved]
  - Headache [Not Recovered/Not Resolved]
  - Hypertension [Not Recovered/Not Resolved]
  - Hypotension [Not Recovered/Not Resolved]
  - Vision blurred [Not Recovered/Not Resolved]
